FAERS Safety Report 25859324 (Version 2)
Quarter: 2025Q4

REPORT INFORMATION
  Report Type: Report from Study
  Country: CA (occurrence: CA)
  Receive Date: 20250929
  Receipt Date: 20251021
  Transmission Date: 20260117
  Serious: Yes (Hospitalization)
  Sender: JOHNSON AND JOHNSON
  Company Number: CA-JNJFOC-20250912069

PATIENT
  Age: 66 Year
  Sex: Female
  Weight: 77 kg

DRUGS (5)
  1. SIMPONI [Suspect]
     Active Substance: GOLIMUMAB
     Indication: Rheumatoid arthritis
     Route: 058
     Dates: start: 20250828
  2. DUPIXENT [Concomitant]
     Active Substance: DUPILUMAB
     Indication: Pemphigoid
     Route: 058
  3. PENICILLIN G [Concomitant]
     Active Substance: PENICILLIN G
     Indication: White blood cells urine
     Dates: start: 20250906
  4. CETIRIZINE HYDROCHLORIDE [Concomitant]
     Active Substance: CETIRIZINE HYDROCHLORIDE
     Indication: Hypersensitivity
     Dates: start: 20250907
  5. BETAMETHASONE VALERATE [Concomitant]
     Active Substance: BETAMETHASONE VALERATE
     Indication: Product used for unknown indication
     Route: 061

REACTIONS (10)
  - COVID-19 [Recovering/Resolving]
  - Pain [Unknown]
  - Asthenia [Unknown]
  - Erythema [Not Recovered/Not Resolved]
  - Drug hypersensitivity [Unknown]
  - White blood cells urine abnormal [Unknown]
  - Discomfort [Unknown]
  - Muscular weakness [Unknown]
  - Sinus congestion [Not Recovered/Not Resolved]
  - Paraesthesia [Unknown]

NARRATIVE: CASE EVENT DATE: 20250905
